FAERS Safety Report 10356289 (Version 1)
Quarter: 2014Q3

REPORT INFORMATION
  Report Type: Other
  Country: LB (occurrence: LB)
  Receive Date: 20140801
  Receipt Date: 20140801
  Transmission Date: 20150326
  Serious: Yes (Other)
  Sender: FDA-Public Use
  Company Number: LB-LUPIN PHARMACEUTICALS INC.-2014-01388

PATIENT
  Age: 21 Year
  Sex: Male

DRUGS (5)
  1. VALIUM [Concomitant]
     Active Substance: DIAZEPAM
     Indication: DRUG WITHDRAWAL SYNDROME
     Route: 065
  2. PANADOL [Concomitant]
     Active Substance: ACETAMINOPHEN
     Indication: DRUG WITHDRAWAL SYNDROME
     Route: 065
  3. DIVALPROEX SODIUM. [Suspect]
     Active Substance: DIVALPROEX SODIUM
     Indication: BIPOLAR II DISORDER
     Route: 065
  4. QUETIAPINE [Interacting]
     Active Substance: QUETIAPINE
     Indication: BIPOLAR II DISORDER
     Route: 065
  5. PROFENID [Concomitant]
     Active Substance: KETOPROFEN
     Indication: DRUG WITHDRAWAL SYNDROME
     Route: 065

REACTIONS (2)
  - Drug interaction [Recovered/Resolved]
  - Hyperammonaemia [Recovered/Resolved]
